FAERS Safety Report 5565673-9 (Version None)
Quarter: 2007Q4

REPORT INFORMATION
  Report Type: 
  Country: None (occurrence: None)
  Receive Date: 20071213
  Receipt Date: 20071210
  Transmission Date: 20080405
  Serious: Yes (Death)
  Sender: FDA-Public Use
  Company Number: 163-21880-07120541

PATIENT
  Age: 77 Year
  Sex: Female

DRUGS (3)
  1. REVLIMID [Suspect]
     Indication: MULTIPLE MYELOMA
     Dosage: 25 MG, 1 IN 1 D, ORAL; 15 MG, 1 IN 1 D, ORAL
     Route: 048
     Dates: start: 20070328, end: 20070101
  2. REVLIMID [Suspect]
     Indication: MULTIPLE MYELOMA
     Dosage: 25 MG, 1 IN 1 D, ORAL; 15 MG, 1 IN 1 D, ORAL
     Route: 048
     Dates: start: 20060609, end: 20070301
  3. REVLIMID [Suspect]
     Indication: MULTIPLE MYELOMA
     Dosage: 25 MG, 1 IN 1 D, ORAL; 15 MG, 1 IN 1 D, ORAL
     Route: 048
     Dates: start: 20070307, end: 20070301

REACTIONS (1)
  - DEATH [None]
